FAERS Safety Report 5683233-6 (Version None)
Quarter: 2008Q1

REPORT INFORMATION
  Report Type: 
  Country: None (occurrence: None)
  Receive Date: 20080326
  Receipt Date: 20080320
  Transmission Date: 20080703
  Serious: Yes (Hospitalization, Other)
  Sender: FDA-Public Use
  Company Number: DAV-AE-MTX-08-004

PATIENT
  Sex: Female
  Weight: 72.5755 kg

DRUGS (8)
  1. METHOTREXATE [Suspect]
     Indication: PROSTATIC SPECIFIC ANTIGEN
     Dates: end: 20070101
  2. METHOTREXATE [Suspect]
     Indication: RHEUMATOID ARTHRITIS
     Dates: end: 20070101
  3. HUMIRA [Suspect]
     Indication: PROSTATIC SPECIFIC ANTIGEN
     Dosage: SQ
     Route: 058
     Dates: start: 20050101, end: 20070123
  4. HUMIRA [Suspect]
     Indication: RHEUMATOID ARTHRITIS
     Dosage: SQ
     Route: 058
     Dates: start: 20050101, end: 20070123
  5. VICODIN [Concomitant]
  6. ALPRAZOLAM [Concomitant]
  7. CITALOPRAM HYDROBROMIDE [Concomitant]
  8. ESOMEPRAZOLE [Concomitant]

REACTIONS (11)
  - BACK PAIN [None]
  - CONDITION AGGRAVATED [None]
  - GASTROINTESTINAL MOTILITY DISORDER [None]
  - HYPOAESTHESIA [None]
  - OSTEOARTHRITIS [None]
  - PARAESTHESIA [None]
  - PARALYSIS [None]
  - PSORIASIS [None]
  - SPINAL CORD OEDEMA [None]
  - URINARY INCONTINENCE [None]
  - WALKING AID USER [None]
